FAERS Safety Report 17962041 (Version 2)
Quarter: 2020Q3

REPORT INFORMATION
  Report Type: Report from Study
  Country: None (occurrence: US)
  Receive Date: 20200629
  Receipt Date: 20200904
  Transmission Date: 20201103
  Serious: Yes (Death)
  Sender: FDA-Public Use
  Company Number: US-PHARMASCIENCE INC.-2086814

PATIENT
  Sex: Female

DRUGS (4)
  1. BUSULFAN. [Suspect]
     Active Substance: BUSULFAN
     Indication: BONE MARROW CONDITIONING REGIMEN
  2. FLUDARABINE [Suspect]
     Active Substance: FLUDARABINE PHOSPHATE
  3. AZACITIDINE. [Suspect]
     Active Substance: AZACITIDINE
  4. RUXOLITINIB [Suspect]
     Active Substance: RUXOLITINIB

REACTIONS (2)
  - Disease progression [Fatal]
  - Acute myeloid leukaemia [Fatal]
